FAERS Safety Report 25418858 (Version 1)
Quarter: 2025Q2

REPORT INFORMATION
  Report Type: Spontaneous
  Country: US (occurrence: US)
  Receive Date: 20250610
  Receipt Date: 20250610
  Transmission Date: 20250717
  Serious: Yes (Other)
  Sender: ROCHE
  Company Number: US-ROCHE-10000301439

PATIENT
  Age: 39 Year
  Sex: Female

DRUGS (7)
  1. ACTEMRA [Suspect]
     Active Substance: TOCILIZUMAB
     Indication: Rheumatoid arthritis
     Route: 058
  2. ACETAMIN TAB 500MG [Concomitant]
  3. ALPRAZOLAM TAB 1MG [Concomitant]
  4. BUPRENORPHIN DIS 20MCG/HR [Concomitant]
  5. CYCLOBENZAPR TAB 8MG [Concomitant]
  6. CYCLOPENTOL SOL 1% OP [Concomitant]
  7. DEXAMETHASON TAB 0.75MG [Concomitant]

REACTIONS (2)
  - Loss of personal independence in daily activities [Recovering/Resolving]
  - Pain [Recovering/Resolving]

NARRATIVE: CASE EVENT DATE: 20250530
